FAERS Safety Report 8576900-8 (Version None)
Quarter: 2012Q3

REPORT INFORMATION
  Report Type: 
  Country: None (occurrence: None)
  Receive Date: 20120807
  Receipt Date: 20120730
  Transmission Date: 20120928
  Serious: Yes (Other)
  Sender: FDA-Public Use
  Company Number: BR-BRISTOL-MYERS SQUIBB COMPANY-16836850

PATIENT
  Age: 63 Year
  Sex: Female

DRUGS (1)
  1. METFORMIN HCL [Suspect]
     Indication: BLOOD GLUCOSE ABNORMAL
     Route: 048

REACTIONS (1)
  - BLOOD URINE PRESENT [None]
